FAERS Safety Report 9045508 (Version 1)
Quarter: 2013Q1

REPORT INFORMATION
  Report Type: Report from Study
  Country: US (occurrence: US)
  Receive Date: 20130131
  Receipt Date: 20130131
  Transmission Date: 20140127
  Serious: No
  Sender: FDA-Public Use
  Company Number: US-ABBOTT-12P-163-0964865-00

PATIENT
  Age: 54 Year
  Sex: Female
  Weight: 68.1 kg

DRUGS (20)
  1. HUMIRA [Suspect]
     Indication: RHEUMATOID ARTHRITIS
     Dates: start: 20120606, end: 20120801
  2. ANTIBIOTICS [Suspect]
     Indication: PHARYNGEAL CYST
  3. ANTIBIOTICS [Suspect]
     Indication: VAGINAL CYST
  4. LYRICA [Concomitant]
     Indication: FIBROMYALGIA
  5. PHENOBARBITAL [Concomitant]
     Indication: CONVULSION
  6. AMITRIPTYLINE [Concomitant]
     Indication: INSOMNIA
     Dosage: AT NIGHT
  7. SIMVASTATIN [Concomitant]
     Indication: BLOOD CHOLESTEROL INCREASED
     Dosage: AT NIGHT
  8. DICYCLOMINE [Concomitant]
     Indication: IRRITABLE BOWEL SYNDROME
     Dosage: TWICE A DAY AS NEEDED
  9. BACLOFEN [Concomitant]
     Indication: FIBROMYALGIA
  10. LEVOTHYROXIN [Concomitant]
     Indication: BLOOD THYROID STIMULATING HORMONE DECREASED
     Dosage: 50 MG EVERY DAY
  11. TRAMADOL [Concomitant]
     Indication: MUSCULOSKELETAL PAIN
     Dosage: 1-2 TABLETS AS NEEDED
  12. ROPINIROLE [Concomitant]
     Indication: RESTLESS LEGS SYNDROME
     Dosage: AT NIGHT
  13. CARBAMAZEPINE [Concomitant]
     Indication: CONVULSION
  14. MELOXICAM [Concomitant]
     Indication: RHEUMATOID ARTHRITIS
  15. FLUOXETINE [Concomitant]
     Indication: DEPRESSION
  16. PROVENTIL HFA [Concomitant]
     Indication: HYPERSENSITIVITY
     Dosage: 1-2 PUFFS EVERY 6 HOURS AS NEEDED
     Route: 055
  17. ONDANSETRON HCL [Concomitant]
     Indication: NAUSEA
     Dosage: AS NEEDED
  18. FOLIC ACID [Concomitant]
     Indication: DRUG THERAPY
  19. METHOTREXATE [Concomitant]
     Indication: PRODUCT USED FOR UNKNOWN INDICATION
     Dosage: 4 TABLETS ON WEDNESDAY AND 4 TABLETS ON THURSDAY
  20. SPIRONOLACTONE AND HYDROCHLOROTHIAZIDE [Concomitant]
     Indication: PRODUCT USED FOR UNKNOWN INDICATION
     Dosage: 25/25MG EVERY DAY

REACTIONS (26)
  - Immunosuppression [Recovering/Resolving]
  - Diarrhoea [Not Recovered/Not Resolved]
  - Blood potassium decreased [Not Recovered/Not Resolved]
  - Sinus congestion [Unknown]
  - Fungal infection [Unknown]
  - Candida infection [Unknown]
  - Impaired healing [Unknown]
  - Thyroid disorder [Not Recovered/Not Resolved]
  - Hypersensitivity [Not Recovered/Not Resolved]
  - Vitamin K decreased [Not Recovered/Not Resolved]
  - Infected cyst [Not Recovered/Not Resolved]
  - Infected cyst [Not Recovered/Not Resolved]
  - Dysphagia [Not Recovered/Not Resolved]
  - Oropharyngeal pain [Not Recovered/Not Resolved]
  - Pain [Not Recovered/Not Resolved]
  - Pain [Not Recovered/Not Resolved]
  - Mass [Recovered/Resolved]
  - Mass [Recovered/Resolved]
  - Dysphagia [Recovered/Resolved]
  - Candida infection [Recovered/Resolved]
  - Oral pain [Recovered/Resolved]
  - Vulvovaginal mycotic infection [Recovered/Resolved]
  - Diarrhoea [Recovered/Resolved]
  - Diverticulitis [Recovered/Resolved]
  - Pain [Not Recovered/Not Resolved]
  - Malaise [Recovered/Resolved]
